FAERS Safety Report 12721864 (Version 1)
Quarter: 2016Q3

REPORT INFORMATION
  Report Type: Spontaneous
  Country: US (occurrence: US)
  Receive Date: 20160907
  Receipt Date: 20160907
  Transmission Date: 20161109
  Serious: No
  Sender: FDA-Public Use
  Company Number: US-MYLANLABS-2015M1032301

PATIENT
  Age: 67 Year
  Sex: Male
  Weight: 63.49 kg

DRUGS (2)
  1. ITRACONAZOLE CAPSULES [Suspect]
     Active Substance: ITRACONAZOLE
     Indication: CANDIDA INFECTION
     Dosage: 100 MG, QD
     Route: 048
     Dates: start: 20150921, end: 20150921
  2. ITRACONAZOLE CAPSULES [Suspect]
     Active Substance: ITRACONAZOLE
     Indication: OFF LABEL USE

REACTIONS (1)
  - Dizziness [Not Recovered/Not Resolved]

NARRATIVE: CASE EVENT DATE: 20150921
